FAERS Safety Report 5904868-9 (Version None)
Quarter: 2008Q4

REPORT INFORMATION
  Report Type: 
  Country: None (occurrence: None)
  Receive Date: 20081001
  Receipt Date: 20080925
  Transmission Date: 20090506
  Serious: Yes (Hospitalization)
  Sender: FDA-Public Use
  Company Number: A0749253A

PATIENT
  Age: 73 Year
  Sex: Female

DRUGS (11)
  1. ADVAIR DISKUS 100/50 [Suspect]
     Indication: CHRONIC OBSTRUCTIVE PULMONARY DISEASE
     Dosage: 1PUFF TWICE PER DAY
     Route: 055
     Dates: start: 20020101
  2. DIOVAN [Concomitant]
  3. CARDIZEM [Concomitant]
  4. NEXIUM [Concomitant]
  5. SINGULAIR [Concomitant]
  6. ZYRTEC [Concomitant]
  7. ALBUTEROL [Concomitant]
  8. XOPENEX [Concomitant]
  9. XANAX [Concomitant]
  10. COMBIVENT [Concomitant]
  11. PREDNISOLONE [Concomitant]

REACTIONS (2)
  - APHONIA [None]
  - MUSCULAR WEAKNESS [None]
